FAERS Safety Report 5065915-2 (Version None)
Quarter: 2006Q3

REPORT INFORMATION
  Report Type: 
  Country: None (occurrence: None)
  Receive Date: 20060731
  Receipt Date: 20060330
  Transmission Date: 20061208
  Serious: Yes (Death, Hospitalization, Other)
  Sender: FDA-Public Use
  Company Number: PHEH2006US04284

PATIENT
  Age: 83 Year
  Sex: Female
  Weight: 59.41 kg

DRUGS (6)
  1. EXJADE [Suspect]
     Indication: BLOOD IRON INCREASED
     Dosage: 1250 MG, QD
     Dates: start: 20060105, end: 20060326
  2. ASPIRIN [Concomitant]
     Dosage: 325 MG, QD
  3. IPRATROPIUM BROMIDE W/SALBUTAMOL [Concomitant]
     Dosage: 2 PUFFS, TID
  4. LASIX [Concomitant]
     Dosage: 20 MG, QD
  5. LOPRESSOR [Concomitant]
     Dosage: 25 MG, QD
  6. POTASSIUM [Concomitant]
     Dosage: 20 EQ, UNK

REACTIONS (55)
  - ALANINE AMINOTRANSFERASE INCREASED [None]
  - ANXIETY [None]
  - ASPARTATE AMINOTRANSFERASE INCREASED [None]
  - ASTHENIA [None]
  - ATELECTASIS [None]
  - ATRIAL FIBRILLATION [None]
  - BLOOD ALBUMIN DECREASED [None]
  - BLOOD ALKALINE PHOSPHATASE INCREASED [None]
  - BLOOD BILIRUBIN INCREASED [None]
  - BLOOD CALCIUM DECREASED [None]
  - BLOOD UREA INCREASED [None]
  - CARDIAC FAILURE CONGESTIVE [None]
  - CARDIOMEGALY [None]
  - CARDIOMYOPATHY [None]
  - CHEST PAIN [None]
  - CHEST TUBE INSERTION [None]
  - CONFUSIONAL STATE [None]
  - DECREASED APPETITE [None]
  - DEHYDRATION [None]
  - DIARRHOEA [None]
  - DISEASE PROGRESSION [None]
  - DYSPHAGIA [None]
  - DYSPNOEA [None]
  - FEELING ABNORMAL [None]
  - GAIT DISTURBANCE [None]
  - HAEMATOCRIT DECREASED [None]
  - HAEMOCHROMATOSIS [None]
  - HAEMOGLOBIN DECREASED [None]
  - INFECTION [None]
  - LEUKOCYTOSIS [None]
  - MALAISE [None]
  - MULTI-ORGAN DISORDER [None]
  - MUSCULAR WEAKNESS [None]
  - MYELODYSPLASTIC SYNDROME [None]
  - OEDEMA PERIPHERAL [None]
  - OESOPHAGEAL INFECTION [None]
  - OESOPHAGEAL ULCER [None]
  - OESOPHAGITIS [None]
  - OPEN WOUND [None]
  - ORAL CANDIDIASIS [None]
  - ORAL INTAKE REDUCED [None]
  - OSTEOMYELITIS [None]
  - PAIN [None]
  - PAIN IN EXTREMITY [None]
  - PARALYSIS [None]
  - PLATELET COUNT DECREASED [None]
  - PLEURAL EFFUSION [None]
  - PNEUMOTHORAX [None]
  - PULMONARY CONGESTION [None]
  - PULMONARY OEDEMA [None]
  - PULMONARY VASCULAR DISORDER [None]
  - PYREXIA [None]
  - RENAL FAILURE CHRONIC [None]
  - SPINAL CORD COMPRESSION [None]
  - TACHYPNOEA [None]
